FAERS Safety Report 9620928 (Version 1)
Quarter: 2013Q4

REPORT INFORMATION
  Report Type: Report from Study
  Country: NZ (occurrence: NZ)
  Receive Date: 20131015
  Receipt Date: 20131015
  Transmission Date: 20140711
  Serious: Yes (Other)
  Sender: FDA-Public Use
  Company Number: PHHY2013NZ114863

PATIENT
  Sex: Female

DRUGS (1)
  1. CLOZARIL [Suspect]
     Dosage: 350 MG, UNK
     Dates: start: 20120621

REACTIONS (3)
  - Nocturnal dyspnoea [Unknown]
  - Aspiration [Unknown]
  - Urinary incontinence [Unknown]
